FAERS Safety Report 18953228 (Version 1)
Quarter: 2021Q1

REPORT INFORMATION
  Report Type: Spontaneous
  Country: FR (occurrence: US)
  Receive Date: 20210301
  Receipt Date: 20210301
  Transmission Date: 20210420
  Serious: Yes (Other)
  Sender: FDA-Public Use
  Company Number: FR-GLAXOSMITHKLINE-PHRM1983FR00147

PATIENT
  Sex: Female

DRUGS (3)
  1. RANITIDINE. [Suspect]
     Active Substance: RANITIDINE
     Indication: DYSPEPSIA
     Dosage: 25 MG, QD
     Route: 065
     Dates: start: 200101, end: 200801
  2. PERISTALTIN [Suspect]
     Active Substance: FRANGULA PURSHIANA BARK
     Dosage: UNK
     Route: 048
  3. RANITIDINE. [Suspect]
     Active Substance: RANITIDINE
     Indication: DYSPEPSIA
     Dosage: 25 MG, QD
     Route: 065
     Dates: start: 200101, end: 200801

REACTIONS (2)
  - Rash [Unknown]
  - Breast cancer [Unknown]

NARRATIVE: CASE EVENT DATE: 1982
